FAERS Safety Report 9851095 (Version 2)
Quarter: 2014Q1

REPORT INFORMATION
  Report Type: Spontaneous
  Country: US (occurrence: US)
  Receive Date: 20140128
  Receipt Date: 20140128
  Transmission Date: 20141002
  Serious: Yes (Hospitalization, Other)
  Sender: FDA-Public Use
  Company Number: US-BAXTER-2014BAX002567

PATIENT
  Age: 60 Year
  Sex: Female

DRUGS (3)
  1. DIANEAL LOW CALCIUM [Suspect]
     Indication: PERITONEAL DIALYSIS
     Route: 033
     Dates: start: 201102
  2. DIANEAL LOW CALCIUM [Suspect]
     Indication: PERITONEAL DIALYSIS
     Route: 033
     Dates: start: 201102
  3. DIANEAL LOW CALCIUM [Suspect]
     Indication: PERITONEAL DIALYSIS
     Route: 033
     Dates: start: 201102

REACTIONS (9)
  - Pneumonia [Recovering/Resolving]
  - Anaemia [Recovering/Resolving]
  - Umbilical hernia, obstructive [Recovered/Resolved]
  - Peritonitis bacterial [Recovered/Resolved]
  - Weight decreased [Recovering/Resolving]
  - Hypophagia [Recovering/Resolving]
  - Cough [Recovering/Resolving]
  - Fluid overload [Recovered/Resolved]
  - Constipation [Recovered/Resolved]
